FAERS Safety Report 7314139-4 (Version None)
Quarter: 2011Q1

REPORT INFORMATION
  Report Type: 
  Country: None (occurrence: None)
  Receive Date: 20110225
  Receipt Date: 20100607
  Transmission Date: 20110831
  Serious: No
  Sender: FDA-Public Use
  Company Number: US-MYLANLABS-2010S1008626

PATIENT
  Age: 20 Year
  Sex: Female
  Weight: 70 kg

DRUGS (2)
  1. AMNESTEEM [Suspect]
     Indication: ACNE
     Route: 048
     Dates: start: 20100210, end: 20100504
  2. CLARAVIS [Suspect]
     Indication: ACNE

REACTIONS (5)
  - DEPRESSION [None]
  - APATHY [None]
  - MOOD ALTERED [None]
  - DISTURBANCE IN ATTENTION [None]
  - CRYING [None]
